FAERS Safety Report 15560274 (Version 1)
Quarter: 2018Q4

REPORT INFORMATION
  Report Type: Spontaneous
  Country: US (occurrence: US)
  Receive Date: 20181027
  Receipt Date: 20181027
  Transmission Date: 20190205
  Serious: Yes (Disabling)
  Sender: FDA-Public Use
  Company Number: None

PATIENT
  Age: 48 Year
  Sex: Female
  Weight: 63 kg

DRUGS (1)
  1. AZITHROMYCIN ANHYDROUS. [Suspect]
     Active Substance: AZITHROMYCIN ANHYDROUS
     Indication: GASTROENTERITIS ESCHERICHIA COLI
     Route: 048
     Dates: start: 20181003, end: 20181006

REACTIONS (2)
  - Tendon rupture [None]
  - Infectious colitis [None]

NARRATIVE: CASE EVENT DATE: 20181010
